FAERS Safety Report 12092328 (Version 1)
Quarter: 2016Q1

REPORT INFORMATION
  Report Type: Spontaneous
  Country: US (occurrence: None)
  Receive Date: 20160217
  Receipt Date: 20160217
  Transmission Date: 20160526
  Serious: No
  Sender: FDA-Public Use
  Company Number: None

PATIENT
  Age: 42 Year
  Sex: Male

DRUGS (1)
  1. XALKORI [Suspect]
     Active Substance: CRIZOTINIB
     Indication: BRONCHIAL CARCINOMA
     Dosage: 2X DAILY
     Route: 048
     Dates: start: 20160119

REACTIONS (2)
  - Oropharyngeal pain [None]
  - Vision blurred [None]

NARRATIVE: CASE EVENT DATE: 201601
